FAERS Safety Report 6820812-4 (Version None)
Quarter: 2010Q3

REPORT INFORMATION
  Report Type: 
  Country: None (occurrence: None)
  Receive Date: 20100707
  Receipt Date: 20100624
  Transmission Date: 20110219
  Serious: Yes (Death)
  Sender: FDA-Public Use
  Company Number: DE-GENENTECH-303050

PATIENT
  Sex: Male

DRUGS (3)
  1. MABTHERA [Suspect]
     Indication: B-CELL LYMPHOMA
     Dosage: 800 MG, UNK
     Route: 042
     Dates: start: 20100518, end: 20100608
  2. FENISTIL [Concomitant]
     Indication: PREMEDICATION
     Dosage: 4 MG, UNK
     Dates: start: 20100518, end: 20100608
  3. SOLU-DECORTIN-H [Concomitant]
     Indication: PREMEDICATION
     Dosage: 50 MG, UNK
     Route: 042
     Dates: start: 20100518, end: 20100608

REACTIONS (1)
  - BRAIN STEM HAEMORRHAGE [None]
